FAERS Safety Report 25893711 (Version 1)
Quarter: 2025Q4

REPORT INFORMATION
  Report Type: Spontaneous
  Country: JP (occurrence: JP)
  Receive Date: 20251008
  Receipt Date: 20251008
  Transmission Date: 20260118
  Serious: Yes (Hospitalization, Other)
  Sender: CELLTRION
  Company Number: JP-CELLTRION INC.-2025JP032270

PATIENT

DRUGS (2)
  1. INFLIXIMAB [Suspect]
     Active Substance: INFLIXIMAB
     Indication: Colitis ulcerative
     Dosage: AROUND MAR TO APR 2025
     Route: 041
     Dates: start: 2025
  2. MESALAMINE [Suspect]
     Active Substance: MESALAMINE
     Indication: Product used for unknown indication
     Route: 065

REACTIONS (5)
  - Pericarditis [Recovering/Resolving]
  - Pericardial effusion [Not Recovered/Not Resolved]
  - Pleural effusion [Unknown]
  - Atrial fibrillation [Unknown]
  - Pyrexia [Unknown]

NARRATIVE: CASE EVENT DATE: 20250101
